FAERS Safety Report 19494302 (Version 1)
Quarter: 2021Q3

REPORT INFORMATION
  Report Type: Spontaneous
  Country: US (occurrence: US)
  Receive Date: 20210705
  Receipt Date: 20210705
  Transmission Date: 20211014
  Serious: Yes (Other)
  Sender: FDA-Public Use
  Company Number: US-GLAXOSMITHKLINE-US2021AMR000010

PATIENT
  Sex: Female
  Weight: 72.57 kg

DRUGS (8)
  1. ADVAIR HFA [Suspect]
     Active Substance: FLUTICASONE PROPIONATE\SALMETEROL XINAFOATE
     Indication: PRODUCT USED FOR UNKNOWN INDICATION
  2. SPIRIVA [Suspect]
     Active Substance: TIOTROPIUM BROMIDE MONOHYDRATE
     Indication: PRODUCT USED FOR UNKNOWN INDICATION
     Dosage: 2 PUFF(S), QD
  3. SPIRIVA [Suspect]
     Active Substance: TIOTROPIUM BROMIDE MONOHYDRATE
     Dosage: 1 PUFF(S), QD
  4. WHOOPING COUGH VACCINE [Suspect]
     Active Substance: UNSPECIFIED INGREDIENT
     Indication: PROPHYLAXIS
     Dosage: UNK
     Dates: start: 202011
  5. PNEUMONIA VACCINE [Suspect]
     Active Substance: PNEUMOCOCCAL VACCINE POLYVALENT
     Dosage: UNK
     Dates: start: 202011
  6. SPIRIVA [Suspect]
     Active Substance: TIOTROPIUM BROMIDE MONOHYDRATE
     Dosage: 1 PUFF(S), QOD
  7. PNEUMONIA VACCINE [Suspect]
     Active Substance: PNEUMOCOCCAL VACCINE POLYVALENT
     Indication: PROPHYLAXIS
     Dosage: UNK
  8. MENINGOCOCCAL POLYSACCHARIDE VACCINE A NOS [Suspect]
     Active Substance: MENINGOCOCCAL POLYSACCHARIDE VACCINE A\NEISSERIA MENINGITIDIS GROUP A CAPSULAR POLYSACCHARIDE ANTIGEN
     Indication: PROPHYLAXIS
     Dosage: UNK
     Dates: start: 202011

REACTIONS (12)
  - Tachycardia [Unknown]
  - Bedridden [Recovered/Resolved]
  - Palpitations [Unknown]
  - Body temperature increased [Unknown]
  - Cough [Unknown]
  - Drug ineffective [Unknown]
  - Biopsy lung abnormal [Unknown]
  - Illness [Unknown]
  - Pertussis [Unknown]
  - Product dose omission issue [Unknown]
  - Blood test abnormal [Recovered/Resolved]
  - Dyspnoea [Unknown]
